FAERS Safety Report 18066972 (Version 3)
Quarter: 2020Q3

REPORT INFORMATION
  Report Type: Report from Study
  Country: US (occurrence: US)
  Receive Date: 20200724
  Receipt Date: 20200811
  Transmission Date: 20201103
  Serious: Yes (Hospitalization)
  Sender: FDA-Public Use
  Company Number: US-EISAI MEDICAL RESEARCH-EC-2020-074180

PATIENT
  Age: 61 Year
  Sex: Female

DRUGS (2)
  1. KEYTRUDA [Suspect]
     Active Substance: PEMBROLIZUMAB
     Indication: ENDOMETRIAL NEOPLASM
     Dosage: UNKNOWN DOSE AND FREQUENCY
     Route: 041
  2. LENVIMA [Suspect]
     Active Substance: LENVATINIB
     Indication: ENDOMETRIAL NEOPLASM
     Route: 048
     Dates: start: 20200425, end: 202006

REACTIONS (21)
  - Intestinal perforation [Recovering/Resolving]
  - Fatigue [Recovering/Resolving]
  - Hyperglycaemia [Recovering/Resolving]
  - Lactic acidosis [Recovering/Resolving]
  - Sinus tachycardia [Recovered/Resolved]
  - Sepsis [Recovered/Resolved]
  - Dyspnoea [Recovered/Resolved]
  - Blood pressure increased [Unknown]
  - Decreased appetite [Recovering/Resolving]
  - Arthralgia [Recovering/Resolving]
  - Pain in extremity [Recovering/Resolving]
  - Loss of personal independence in daily activities [Recovered/Resolved]
  - Blood urea increased [Recovering/Resolving]
  - Gastritis [Recovering/Resolving]
  - Abdominal abscess [Recovering/Resolving]
  - Intestinal obstruction [Recovering/Resolving]
  - Urinary tract infection [Recovered/Resolved]
  - Hyperthyroidism [Recovering/Resolving]
  - Abdominal adhesions [Recovering/Resolving]
  - Blood pressure fluctuation [Recovered/Resolved]
  - Hypomagnesaemia [Recovering/Resolving]

NARRATIVE: CASE EVENT DATE: 2020
